FAERS Safety Report 5682977-X (Version None)
Quarter: 2008Q1

REPORT INFORMATION
  Report Type: 
  Country: None (occurrence: None)
  Receive Date: 20080327
  Receipt Date: 20080324
  Transmission Date: 20080703
  Serious: Yes (Hospitalization)
  Sender: FDA-Public Use
  Company Number: US-ASTRAZENECA-2008UW05901

PATIENT
  Age: 62 Year
  Sex: Female
  Weight: 124.7 kg

DRUGS (3)
  1. SEROQUEL [Suspect]
     Indication: SLEEP DISORDER
     Dates: start: 20030101
  2. GABAPENTIN [Concomitant]
  3. TOPAMAX [Concomitant]

REACTIONS (6)
  - APHASIA [None]
  - ASTHENIA [None]
  - DISSOCIATION [None]
  - PSYCHOTIC DISORDER [None]
  - THYROIDITIS [None]
  - VENTRICULAR EXTRASYSTOLES [None]
